FAERS Safety Report 5767849-4 (Version None)
Quarter: 2008Q2

REPORT INFORMATION
  Report Type: 
  Country: None (occurrence: None)
  Receive Date: 20080612
  Receipt Date: 20080604
  Transmission Date: 20081010
  Serious: Yes (Hospitalization)
  Sender: FDA-Public Use
  Company Number: PHHO2008BR06327

PATIENT
  Sex: Male
  Weight: 74.4 kg

DRUGS (1)
  1. TASIGNA [Suspect]
     Indication: CHRONIC MYELOID LEUKAEMIA
     Dosage: 800MG DAILY
     Route: 048
     Dates: start: 20080318, end: 20080512

REACTIONS (7)
  - ANAEMIA [None]
  - EAR HAEMORRHAGE [None]
  - EAR PAIN [None]
  - NEUTROPENIA [None]
  - OTITIS MEDIA [None]
  - PYREXIA [None]
  - THROMBOCYTOPENIA [None]
